FAERS Safety Report 10240736 (Version 1)
Quarter: 2014Q2

REPORT INFORMATION
  Report Type: Spontaneous
  Country: CN (occurrence: CN)
  Receive Date: 20140617
  Receipt Date: 20140617
  Transmission Date: 20141212
  Serious: Yes (Death)
  Sender: FDA-Public Use
  Company Number: CN-ROCHE-1419217

PATIENT
  Sex: Female
  Weight: 59 kg

DRUGS (3)
  1. CAPECITABINE [Suspect]
     Indication: NEOPLASM
     Route: 048
     Dates: start: 20130521, end: 20130523
  2. FILGRASTIM [Suspect]
     Indication: WHITE BLOOD CELL COUNT INCREASED
     Route: 030
     Dates: start: 20130524, end: 20130525
  3. DUOPAFEI [Suspect]
     Indication: NEOPLASM
     Route: 041
     Dates: start: 20130521, end: 20130525

REACTIONS (13)
  - Bone marrow failure [Fatal]
  - Pain [None]
  - Discomfort [None]
  - Oedema peripheral [None]
  - Asthenia [None]
  - Nausea [None]
  - Decreased appetite [None]
  - Atrial tachycardia [None]
  - Ventricular extrasystoles [None]
  - Hypoaesthesia [None]
  - Loss of consciousness [None]
  - Blood pressure immeasurable [None]
  - Pupil fixed [None]
